FAERS Safety Report 6536154-0 (Version None)
Quarter: 2010Q1

REPORT INFORMATION
  Report Type: 
  Country: None (occurrence: None)
  Receive Date: 20100113
  Receipt Date: 20091020
  Transmission Date: 20100710
  Serious: No
  Sender: FDA-Public Use
  Company Number: US-ALLERGAN-0914297US

PATIENT
  Age: 58 Year
  Sex: Female
  Weight: 58.957 kg

DRUGS (3)
  1. LATISSE [Suspect]
     Indication: HYPOTRICHOSIS
     Dosage: 1 GTT, QHS
     Route: 061
     Dates: start: 20091013, end: 20091015
  2. MASCARA [Concomitant]
     Dosage: BUT NOT WHILE APPLYING LATISSE
  3. EYELINER [Concomitant]
     Dosage: BUT NOT WHILE APPLYING LATISSE

REACTIONS (5)
  - BURNING SENSATION [None]
  - ERYTHEMA [None]
  - OCULAR HYPERAEMIA [None]
  - PRURITUS [None]
  - VISION BLURRED [None]
